FAERS Safety Report 19860771 (Version 3)
Quarter: 2022Q1

REPORT INFORMATION
  Report Type: Spontaneous
  Country: JP (occurrence: JP)
  Receive Date: 20210921
  Receipt Date: 20220210
  Transmission Date: 20220423
  Serious: Yes (Hospitalization, Other)
  Sender: FDA-Public Use
  Company Number: JP-CELGENE-JPN-20210903911

PATIENT
  Age: 68 Year
  Sex: Female

DRUGS (6)
  1. ABRAXANE [Suspect]
     Active Substance: PACLITAXEL
     Indication: Pancreatic carcinoma recurrent
     Route: 041
     Dates: start: 20210701, end: 20210701
  2. ABRAXANE [Suspect]
     Active Substance: PACLITAXEL
     Route: 041
     Dates: start: 20210708, end: 20210715
  3. ABRAXANE [Suspect]
     Active Substance: PACLITAXEL
     Route: 041
     Dates: start: 20210812, end: 20210826
  4. GEMCITABINE [Concomitant]
     Active Substance: GEMCITABINE
     Indication: Pancreatic carcinoma recurrent
     Route: 041
     Dates: start: 20210701, end: 20210701
  5. GEMCITABINE [Concomitant]
     Active Substance: GEMCITABINE
     Route: 041
     Dates: start: 20210708, end: 20210715
  6. GEMCITABINE [Concomitant]
     Active Substance: GEMCITABINE
     Route: 041
     Dates: start: 20210812, end: 20210826

REACTIONS (4)
  - Haematemesis [Unknown]
  - Gastrointestinal mucosal necrosis [Recovering/Resolving]
  - Decreased appetite [Unknown]
  - Vomiting [Unknown]

NARRATIVE: CASE EVENT DATE: 20210901
